FAERS Safety Report 6291617-0 (Version None)
Quarter: 2009Q3

REPORT INFORMATION
  Report Type: 
  Country: None (occurrence: None)
  Receive Date: 20090730
  Receipt Date: 20090722
  Transmission Date: 20100115
  Serious: Yes (Other)
  Sender: FDA-Public Use
  Company Number: FR-ASTRAZENECA-2009CG01280

PATIENT
  Age: 12 Year
  Sex: Female
  Weight: 47 kg

DRUGS (5)
  1. NEXIUM [Suspect]
     Indication: HELICOBACTER GASTRITIS
     Route: 048
     Dates: start: 20090415, end: 20090602
  2. ANTIBIOTICS [Concomitant]
     Indication: HELICOBACTER GASTRITIS
     Route: 065
     Dates: start: 20090404, end: 20090411
  3. ESTIMA [Concomitant]
     Route: 065
     Dates: start: 20090501, end: 20090608
  4. CALCIUM [Concomitant]
     Route: 065
  5. MAGNESIUM [Concomitant]
     Route: 065

REACTIONS (4)
  - DYSPNOEA [None]
  - HALLUCINATIONS, MIXED [None]
  - HEADACHE [None]
  - IRRITABILITY [None]
